FAERS Safety Report 19808804 (Version 1)
Quarter: 2021Q3

REPORT INFORMATION
  Report Type: Spontaneous
  Country: US (occurrence: US)
  Receive Date: 20210909
  Receipt Date: 20210909
  Transmission Date: 20211014
  Serious: Yes (Hospitalization)
  Sender: FDA-Public Use
  Company Number: None

PATIENT
  Age: 60 Year
  Sex: Female
  Weight: 99.8 kg

DRUGS (1)
  1. REGEN?COV [Suspect]
     Active Substance: CASIRIVIMAB\IMDEVIMAB
     Indication: COVID-19
     Dosage: ?          OTHER FREQUENCY:ONCE;?
     Route: 042
     Dates: start: 20210908, end: 20210908

REACTIONS (11)
  - Skin burning sensation [None]
  - Musculoskeletal chest pain [None]
  - Arthralgia [None]
  - Limb discomfort [None]
  - Hyperglycaemia [None]
  - Transaminases increased [None]
  - Flushing [None]
  - Chest discomfort [None]
  - Back pain [None]
  - Infusion related reaction [None]
  - COVID-19 pneumonia [None]

NARRATIVE: CASE EVENT DATE: 20210908
